FAERS Safety Report 20204051 (Version 4)
Quarter: 2022Q1

REPORT INFORMATION
  Report Type: Report from Study
  Country: US (occurrence: US)
  Receive Date: 20211220
  Receipt Date: 20220322
  Transmission Date: 20220423
  Serious: Yes (Other)
  Sender: FDA-Public Use
  Company Number: US-SEATTLE GENETICS-2021SGN06472

PATIENT
  Age: 31 Year
  Sex: Female
  Weight: 50.8 kg

DRUGS (5)
  1. TISOTUMAB VEDOTIN [Suspect]
     Active Substance: TISOTUMAB VEDOTIN
     Indication: Cervix carcinoma recurrent
     Dosage: 2 MG/KG, Q3WEEKS
     Route: 042
     Dates: start: 20210913, end: 20211215
  2. TISOTUMAB VEDOTIN [Suspect]
     Active Substance: TISOTUMAB VEDOTIN
     Dosage: 1.3 MG/KG, Q3WEEKS
     Route: 042
     Dates: start: 20211217
  3. ENOXAPARIN SODIUM [Concomitant]
     Active Substance: ENOXAPARIN SODIUM
     Indication: Thrombosis prophylaxis
     Dosage: 50 MG, QD
     Route: 058
     Dates: start: 20211207
  4. ENOXAPARIN SODIUM [Concomitant]
     Active Substance: ENOXAPARIN SODIUM
     Dosage: 60 MG/0.6 ML
  5. HEPARIN [Concomitant]
     Active Substance: HEPARIN SODIUM
     Indication: Thrombosis prophylaxis
     Dosage: 18 UNITS/KG/HR
     Route: 042
     Dates: start: 20211206, end: 20211206

REACTIONS (1)
  - Liver injury [Recovered/Resolved]

NARRATIVE: CASE EVENT DATE: 20211215
